FAERS Safety Report 18549114 (Version 1)
Quarter: 2020Q4

REPORT INFORMATION
  Report Type: Spontaneous
  Country: DE (occurrence: DE)
  Receive Date: 20201126
  Receipt Date: 20201126
  Transmission Date: 20210114
  Serious: Yes (Other)
  Sender: FDA-Public Use
  Company Number: DE-TEVA-2020-DE-1851283

PATIENT
  Age: 67 Year
  Sex: Female

DRUGS (9)
  1. TRASTUZUMAB. [Suspect]
     Active Substance: TRASTUZUMAB
     Indication: BREAST CANCER
     Route: 013
  2. TRASTUZUMAB. [Suspect]
     Active Substance: TRASTUZUMAB
     Indication: HORMONE RECEPTOR POSITIVE BREAST CANCER
  3. PACLITAXEL. [Suspect]
     Active Substance: PACLITAXEL
     Indication: HORMONE RECEPTOR POSITIVE BREAST CANCER
  4. PERTUZUMAB. [Suspect]
     Active Substance: PERTUZUMAB
     Indication: BREAST CANCER
     Route: 013
  5. PACLITAXEL. [Suspect]
     Active Substance: PACLITAXEL
     Indication: HORMONE RECEPTOR POSITIVE BREAST CANCER
  6. PERTUZUMAB. [Suspect]
     Active Substance: PERTUZUMAB
     Indication: HORMONE RECEPTOR POSITIVE BREAST CANCER
  7. PACLITAXEL. [Suspect]
     Active Substance: PACLITAXEL
     Indication: BREAST CANCER
     Route: 013
  8. TRASTUZUMAB. [Suspect]
     Active Substance: TRASTUZUMAB
     Indication: HORMONE RECEPTOR POSITIVE BREAST CANCER
  9. PERTUZUMAB. [Suspect]
     Active Substance: PERTUZUMAB
     Indication: HORMONE RECEPTOR POSITIVE BREAST CANCER

REACTIONS (3)
  - Amnesia [Recovered/Resolved]
  - Toxic encephalopathy [Unknown]
  - Personality change [Unknown]
